FAERS Safety Report 4582450-6 (Version None)
Quarter: 2005Q1

REPORT INFORMATION
  Report Type: 
  Country: None (occurrence: None)
  Receive Date: 20050125
  Receipt Date: 20041019
  Transmission Date: 20050727
  Serious: No
  Sender: FDA-Public Use
  Company Number: REM_00073_2004

PATIENT
  Age: 55 Year
  Sex: Male
  Weight: 113 kg

DRUGS (6)
  1. REMODULIN [Suspect]
     Indication: PULMONARY HYPERTENSION
     Dosage: 5.25 NG/KG/MIN CONTINOUS SC
     Route: 058
     Dates: start: 20040922
  2. LASIX [Concomitant]
  3. CITALOPRAM [Concomitant]
  4. GLYBURIDE [Concomitant]
  5. ALTACE [Concomitant]
  6. SPIRONOLACTONE [Concomitant]

REACTIONS (3)
  - INFUSION SITE BRUISING [None]
  - INFUSION SITE PAIN [None]
  - INJECTION SITE HAEMORRHAGE [None]
